FAERS Safety Report 11776208 (Version 1)
Quarter: 2015Q4

REPORT INFORMATION
  Report Type: Spontaneous
  Country: US (occurrence: US)
  Receive Date: 20151125
  Receipt Date: 20151125
  Transmission Date: 20160304
  Serious: No
  Sender: FDA-Public Use
  Company Number: US-ASTRAZENECA-2015SF11636

PATIENT
  Sex: Female

DRUGS (2)
  1. ARIMIDEX [Suspect]
     Active Substance: ANASTROZOLE
     Route: 048
     Dates: start: 201510
  2. ZOMETA [Concomitant]
     Active Substance: ZOLEDRONIC ACID

REACTIONS (3)
  - Vertigo [Unknown]
  - Tinnitus [Unknown]
  - Dizziness [Unknown]

NARRATIVE: CASE EVENT DATE: 201511
